FAERS Safety Report 5257825-2 (Version None)
Quarter: 2007Q1

REPORT INFORMATION
  Report Type: 
  Country: None (occurrence: None)
  Receive Date: 20070307
  Receipt Date: 20070223
  Transmission Date: 20070707
  Serious: Yes (Hospitalization)
  Sender: FDA-Public Use
  Company Number: AR-PFIZER INC-2006073501

PATIENT
  Sex: Male
  Weight: 3 kg

DRUGS (4)
  1. LYRICA [Suspect]
     Indication: EPILEPSY
     Dosage: DAILY DOSE:450MG
     Route: 064
  2. LUMINAL [Concomitant]
     Indication: EPILEPSY
     Route: 065
  3. PHENOBARBITAL TAB [Concomitant]
  4. RIVOTRIL [Concomitant]

REACTIONS (3)
  - BLOOD BILIRUBIN INCREASED [None]
  - DRUG EXPOSURE DURING PREGNANCY [None]
  - WEIGHT GAIN POOR [None]
